FAERS Safety Report 6815304-2 (Version None)
Quarter: 2010Q3

REPORT INFORMATION
  Report Type: 
  Country: None (occurrence: None)
  Receive Date: 20100701
  Receipt Date: 20100701
  Transmission Date: 20110219
  Serious: Yes (Life-Threatening)
  Sender: FDA-Public Use
  Company Number: None

PATIENT
  Age: 29 Year
  Sex: Male
  Weight: 89.8122 kg

DRUGS (3)
  1. EFFEXOR [Suspect]
  2. HYDROXYZINE [Concomitant]
  3. CHLORDIAZEPOXIDE/CLIDINIUM CAPS [Concomitant]

REACTIONS (3)
  - HEADACHE [None]
  - NIGHTMARE [None]
  - NUCLEAR MAGNETIC RESONANCE IMAGING BRAIN ABNORMAL [None]
